FAERS Safety Report 7366042-1 (Version None)
Quarter: 2011Q1

REPORT INFORMATION
  Report Type: 
  Country: None (occurrence: None)
  Receive Date: 20110322
  Receipt Date: 20110308
  Transmission Date: 20110831
  Serious: Yes (Hospitalization, Other)
  Sender: FDA-Public Use
  Company Number: US-JNJFOC-20070106753

PATIENT
  Sex: Male
  Weight: 39 kg

DRUGS (7)
  1. FLONASE [Concomitant]
  2. FLUCONAZOLE [Concomitant]
  3. LOVENOX [Concomitant]
     Route: 058
  4. INFLIXIMAB [Suspect]
     Indication: INFLAMMATORY BOWEL DISEASE
     Dosage: 15 DOSES TOTAL
     Route: 042
  5. INFLIXIMAB [Suspect]
     Route: 042
  6. ACETAMINOPHEN [Concomitant]
  7. COUMADIN [Concomitant]

REACTIONS (3)
  - ENTEROSTOMY [None]
  - SIGMOIDECTOMY [None]
  - APPENDICECTOMY [None]
